FAERS Safety Report 5354972-1 (Version None)
Quarter: 2007Q2

REPORT INFORMATION
  Report Type: 
  Country: None (occurrence: None)
  Receive Date: 20070521
  Receipt Date: 20070327
  Transmission Date: 20071010
  Serious: No
  Sender: FDA-Public Use
  Company Number: WAES 0703USA05162

PATIENT
  Sex: Female

DRUGS (4)
  1. JANUVIA [Suspect]
     Indication: DIABETES MELLITUS NON-INSULIN-DEPENDENT
     Dosage: 100MG/DAILY/PO
     Route: 048
  2. ACTOS [Concomitant]
  3. GLUCOPHAGE [Concomitant]
  4. LITHIUM CARBONATE [Concomitant]

REACTIONS (1)
  - BIPOLAR DISORDER [None]
